FAERS Safety Report 4913997-8 (Version None)
Quarter: 2006Q1

REPORT INFORMATION
  Report Type: 
  Country: None (occurrence: None)
  Receive Date: 20060210
  Receipt Date: 20060126
  Transmission Date: 20060701
  Serious: Yes (Hospitalization)
  Sender: FDA-Public Use
  Company Number: 2006BI001479

PATIENT
  Age: 53 Year
  Sex: Female
  Weight: 77.1115 kg

DRUGS (2)
  1. AVONEX [Suspect]
     Indication: MULTIPLE SCLEROSIS
     Dosage: 30 UG; QW; IM
     Route: 030
     Dates: start: 20030101
  2. ADDERALL 10 [Concomitant]

REACTIONS (6)
  - BACTERIAL INFECTION [None]
  - DEEP VEIN THROMBOSIS [None]
  - ENCEPHALITIS [None]
  - HERPES VIRUS INFECTION [None]
  - PULMONARY EMBOLISM [None]
  - WEIGHT DECREASED [None]
